FAERS Safety Report 9515704 (Version 1)
Quarter: 2013Q1

REPORT INFORMATION
  Report Type: Spontaneous
  Country: US (occurrence: None)
  Receive Date: 20130305
  Receipt Date: 20130305
  Transmission Date: 20140127
  Serious: Yes (Hospitalization)
  Sender: FDA-Public Use
  Company Number: 163-21880-12122913

PATIENT
  Age: 73 Year
  Sex: Female
  Weight: 48.54 kg

DRUGS (9)
  1. REVLIMID [Suspect]
     Indication: PLASMA CELL MYELOMA
     Route: 048
     Dates: start: 20100209
  2. ASPIRIN (ACETYLSALICYLIC ACID) [Concomitant]
  3. B-12  (CYANOCOBALAMIN) [Concomitant]
  4. CALCIUM CITRATE-VITAMIN (CALCIUM CITRATE W/COLECALCIFEROL) [Concomitant]
  5. ENALAPRIL MALEATE (ENALAPRIL MALEATE) [Concomitant]
  6. ESSENTIAL WOMAN (ALL OTHER THERAPEUTIC PRODUCTS) [Concomitant]
  7. OMEPRAZOLE (OMEPRAZOLE) [Concomitant]
  8. POTASSIUM (POTASSIUM) [Concomitant]
  9. PRAVASTATIN SODIUM (PRAVASTATIN SODIUM0 [Concomitant]

REACTIONS (1)
  - Plasma cell myeloma [None]
